FAERS Safety Report 23751649 (Version 1)
Quarter: 2024Q2

REPORT INFORMATION
  Report Type: Spontaneous
  Country: US (occurrence: US)
  Receive Date: 20240417
  Receipt Date: 20240417
  Transmission Date: 20240716
  Serious: Yes (Other)
  Sender: FDA-Public Use
  Company Number: US-PFIZER INC-202400087476

PATIENT
  Age: 61 Year
  Sex: Female

DRUGS (1)
  1. BRAFTOVI [Suspect]
     Active Substance: ENCORAFENIB
     Dosage: 75MG TAKE 1 CAPSULE BY MOUTH EVERY 12 HOURS
     Route: 048

REACTIONS (6)
  - Biliary tract operation [Unknown]
  - Pain [Unknown]
  - Fatigue [Unknown]
  - Decreased appetite [Unknown]
  - Constipation [Unknown]
  - Off label use [Unknown]
